FAERS Safety Report 24011073 (Version 1)
Quarter: 2024Q2

REPORT INFORMATION
  Report Type: Report from Study
  Country: BR (occurrence: BR)
  Receive Date: 20240625
  Receipt Date: 20240625
  Transmission Date: 20240716
  Serious: Yes (Death, Other)
  Sender: FDA-Public Use
  Company Number: BR-PFIZER INC-202400198273

PATIENT
  Sex: Male

DRUGS (18)
  1. CARBOPLATIN [Suspect]
     Active Substance: CARBOPLATIN
     Indication: Germ cell cancer
     Dosage: 700 MG/M2, CYCLIC (2 CYCLES FOR 3 CONSECUTIVE DAY)
  2. ETOPOSIDE [Suspect]
     Active Substance: ETOPOSIDE
     Indication: Germ cell cancer
     Dosage: 750 MG/M2, CYCLIC (2 CYCLES FOR 3 CONSECUTIVE DAYS)
  3. PACLITAXEL [Suspect]
     Active Substance: PACLITAXEL
     Indication: Germ cell cancer
     Dosage: UNK, CYCLIC
  4. PACLITAXEL [Suspect]
     Active Substance: PACLITAXEL
     Indication: Haematopoietic stem cell mobilisation
  5. IFOSFAMIDE [Suspect]
     Active Substance: IFOSFAMIDE
     Indication: Germ cell cancer
     Dosage: UNK, CYCLIC
  6. IFOSFAMIDE [Suspect]
     Active Substance: IFOSFAMIDE
     Indication: Haematopoietic stem cell mobilisation
  7. CISPLATIN [Suspect]
     Active Substance: CISPLATIN
     Indication: Germ cell cancer
     Dosage: UNK, CYCLIC
  8. CISPLATIN [Suspect]
     Active Substance: CISPLATIN
     Indication: Haematopoietic stem cell mobilisation
  9. SULFAMETHOXAZOLE\TRIMETHOPRIM [Concomitant]
     Active Substance: SULFAMETHOXAZOLE\TRIMETHOPRIM
     Indication: Germ cell cancer
     Dosage: UNK
  10. SULFAMETHOXAZOLE\TRIMETHOPRIM [Concomitant]
     Active Substance: SULFAMETHOXAZOLE\TRIMETHOPRIM
     Indication: Haematopoietic stem cell mobilisation
  11. LEVOFLOXACIN [Concomitant]
     Active Substance: LEVOFLOXACIN
     Indication: Germ cell cancer
     Dosage: UNK
  12. LEVOFLOXACIN [Concomitant]
     Active Substance: LEVOFLOXACIN
     Indication: Haematopoietic stem cell mobilisation
  13. FLUCONAZOLE [Concomitant]
     Active Substance: FLUCONAZOLE
     Indication: Germ cell cancer
     Dosage: UNK
  14. FLUCONAZOLE [Concomitant]
     Active Substance: FLUCONAZOLE
     Indication: Haematopoietic stem cell mobilisation
  15. ACYCLOVIR [Concomitant]
     Active Substance: ACYCLOVIR
     Indication: Germ cell cancer
     Dosage: UNK
  16. ACYCLOVIR [Concomitant]
     Active Substance: ACYCLOVIR
     Indication: Haematopoietic stem cell mobilisation
  17. GRANULOCYTE COLONY-STIMULATING FACTOR NOS [Concomitant]
     Active Substance: GRANULOCYTE COLONY-STIMULATING FACTOR NOS
     Indication: Germ cell cancer
     Dosage: 10 TO 20 MCG/KG/DAY
     Route: 058
  18. GRANULOCYTE COLONY-STIMULATING FACTOR NOS [Concomitant]
     Active Substance: GRANULOCYTE COLONY-STIMULATING FACTOR NOS
     Indication: Haematopoietic stem cell mobilisation

REACTIONS (1)
  - Febrile neutropenia [Fatal]
